FAERS Safety Report 5127443-5 (Version None)
Quarter: 2006Q4

REPORT INFORMATION
  Report Type: 
  Country: None (occurrence: None)
  Receive Date: 20061013
  Receipt Date: 20061013
  Transmission Date: 20070319
  Serious: No
  Sender: FDA-Public Use
  Company Number: None

PATIENT
  Sex: Female
  Weight: 81.6 kg

DRUGS (2)
  1. CISPLATIN [Suspect]
     Dosage: 112 MG
  2. ETOPOSIDE [Suspect]
     Dosage: 1124 MG

REACTIONS (1)
  - NEUTROPHIL COUNT DECREASED [None]
